FAERS Safety Report 23381025 (Version 1)
Quarter: 2024Q1

REPORT INFORMATION
  Report Type: Spontaneous
  Country: US (occurrence: US)
  Receive Date: 20240109
  Receipt Date: 20240109
  Transmission Date: 20240410
  Serious: No
  Sender: FDA-Public Use
  Company Number: US-BRISTOL-MYERS SQUIBB COMPANY-2024-004265

PATIENT
  Age: 60 Year
  Sex: Female
  Weight: 57.8 kg

DRUGS (2)
  1. REVLIMID [Suspect]
     Active Substance: LENALIDOMIDE
     Indication: Plasma cell myeloma
     Dosage: DOSE : 5 MG;     FREQ : DAILY FOR 21 DAYS AND 7 DAYS OFF; ROA: BY MOUTH
     Route: 048
  2. REVLIMID [Suspect]
     Active Substance: LENALIDOMIDE
     Dosage: DOSE : 20MG;     FREQ : DAILY FOR 21 DAYS AND 7 DAYS OFF; ROA: BY MOUTH
     Route: 048

REACTIONS (1)
  - Laboratory test abnormal [Unknown]
